FAERS Safety Report 6454793-2 (Version None)
Quarter: 2009Q4

REPORT INFORMATION
  Report Type: 
  Country: None (occurrence: None)
  Receive Date: 20091118
  Receipt Date: 20091104
  Transmission Date: 20100525
  Serious: Yes (Disabling)
  Sender: FDA-Public Use
  Company Number: 1000009739

PATIENT
  Age: 54 Year
  Sex: Male

DRUGS (2)
  1. CITALOPRAM HYDROBROMIDE [Suspect]
     Dosage: ORAL
     Route: 048
  2. DULOXETINE HYDROCHLORIDE [Concomitant]

REACTIONS (1)
  - ACCOMMODATION DISORDER [None]
